FAERS Safety Report 24674110 (Version 1)
Quarter: 2024Q4

REPORT INFORMATION
  Report Type: Report from Study
  Country: CA (occurrence: CA)
  Receive Date: 20241128
  Receipt Date: 20241128
  Transmission Date: 20250115
  Serious: Yes (Death, Other)
  Sender: CSL BEHRING
  Company Number: CA-BEH-2024186596

PATIENT
  Age: 72 Year
  Sex: Male
  Weight: 79.4 kg

DRUGS (10)
  1. HIZENTRA [Suspect]
     Active Substance: HUMAN IMMUNOGLOBULIN G
     Indication: Secondary immunodeficiency
     Dosage: 10 G, QW
     Route: 065
     Dates: start: 20170705
  2. ALLOPURINOL [Concomitant]
     Active Substance: ALLOPURINOL
  3. PREGABALIN [Concomitant]
     Active Substance: PREGABALIN
  4. AMLODIPINE [Concomitant]
     Active Substance: AMLODIPINE BESYLATE
  5. MONTELUKAST [Concomitant]
     Active Substance: MONTELUKAST
  6. BRICANYL [Concomitant]
     Active Substance: TERBUTALINE SULFATE
  7. PREDNISONE [Concomitant]
     Active Substance: PREDNISONE
  8. CALCIUM [Concomitant]
     Active Substance: CALCIUM
  9. DEXILANT [Concomitant]
     Active Substance: DEXLANSOPRAZOLE
  10. ASPIRIN [Concomitant]
     Active Substance: ASPIRIN

REACTIONS (3)
  - Death [Fatal]
  - Acute leukaemia [Unknown]
  - Neoplasm malignant [Unknown]

NARRATIVE: CASE EVENT DATE: 20240301
